FAERS Safety Report 21241610 (Version 1)
Quarter: 2022Q3

REPORT INFORMATION
  Report Type: Spontaneous
  Country: US (occurrence: US)
  Receive Date: 20220823
  Receipt Date: 20220823
  Transmission Date: 20221026
  Serious: Yes (Other)
  Sender: FDA-Public Use
  Company Number: US-SA-SAC20220818000291

PATIENT
  Age: 77 Year
  Sex: Male

DRUGS (1)
  1. ZANTAC [Suspect]
     Active Substance: RANITIDINE HYDROCHLORIDE
     Dosage: UNK, QW, UNKNOWN AT THIS TIME;WEEKLY
     Dates: start: 201601, end: 201912

REACTIONS (2)
  - Oesophageal carcinoma [Unknown]
  - Gastric cancer [Unknown]

NARRATIVE: CASE EVENT DATE: 20200803
